FAERS Safety Report 17740179 (Version 1)
Quarter: 2020Q2

REPORT INFORMATION
  Report Type: Spontaneous
  Country: US (occurrence: US)
  Receive Date: 20200504
  Receipt Date: 20200504
  Transmission Date: 20200714
  Serious: No
  Sender: FDA-Public Use
  Company Number: None

PATIENT
  Age: 63 Year
  Sex: Female

DRUGS (1)
  1. CAPECITABINE TAB 500MG [Suspect]
     Active Substance: CAPECITABINE
     Indication: NEOPLASM MALIGNANT
     Route: 048
     Dates: start: 202004, end: 202005

REACTIONS (7)
  - Therapy cessation [None]
  - Diarrhoea [None]
  - Pain [None]
  - Nausea [None]
  - Weight decreased [None]
  - Vomiting [None]
  - Neuropathy peripheral [None]

NARRATIVE: CASE EVENT DATE: 20200501
